FAERS Safety Report 5145860-4 (Version None)
Quarter: 2006Q4

REPORT INFORMATION
  Report Type: 
  Country: None (occurrence: None)
  Receive Date: 20061108
  Receipt Date: 20061102
  Transmission Date: 20070319
  Serious: Yes (Hospitalization)
  Sender: FDA-Public Use
  Company Number: JP-BAYER-200611181BYL

PATIENT
  Age: 78 Year
  Sex: Female

DRUGS (2)
  1. ASPIRIN [Suspect]
     Dosage: TOTAL DAILY DOSE: 100 MG  UNIT DOSE: 100 MG
     Route: 048
     Dates: start: 20060706, end: 20060928
  2. OMEPRAL [Suspect]
     Route: 048

REACTIONS (2)
  - HAEMORRHAGE SUBCUTANEOUS [None]
  - PANCYTOPENIA [None]
